FAERS Safety Report 4892127-5 (Version None)
Quarter: 2006Q1

REPORT INFORMATION
  Report Type: 
  Country: None (occurrence: None)
  Receive Date: 20060123
  Receipt Date: 20051031
  Transmission Date: 20060701
  Serious: Yes (Hospitalization)
  Sender: FDA-Public Use
  Company Number: 2005150669

PATIENT
  Sex: Male

DRUGS (1)
  1. CARDURA XL [Suspect]
     Indication: BENIGN PROSTATIC HYPERPLASIA
     Dosage: 4 MG (4 MG, 1 IN 1 D), ORAL
     Route: 048
     Dates: start: 20050404

REACTIONS (2)
  - DIVERTICULITIS [None]
  - SPERMATOGENESIS ABNORMAL [None]
